FAERS Safety Report 15334772 (Version 1)
Quarter: 2018Q3

REPORT INFORMATION
  Report Type: Spontaneous
  Country: CN (occurrence: CN)
  Receive Date: 20180830
  Receipt Date: 20180830
  Transmission Date: 20181010
  Serious: Yes (Hospitalization)
  Sender: FDA-Public Use
  Company Number: CN-ASTRAZENECA-2018SF07912

PATIENT
  Age: 25 Year
  Sex: Female
  Weight: 57 kg

DRUGS (2)
  1. ACARBOSE. [Concomitant]
     Active Substance: ACARBOSE
     Route: 048
  2. DAPAGLIFLOZIN. [Suspect]
     Active Substance: DAPAGLIFLOZIN
     Route: 048

REACTIONS (4)
  - Nausea [Recovering/Resolving]
  - Vomiting [Recovering/Resolving]
  - Glucose urine present [Recovering/Resolving]
  - Urine ketone body present [Recovering/Resolving]
